FAERS Safety Report 9397197 (Version 1)
Quarter: 2013Q3

REPORT INFORMATION
  Report Type: Spontaneous
  Country: NL (occurrence: NL)
  Receive Date: 20130712
  Receipt Date: 20130712
  Transmission Date: 20140515
  Serious: Yes (Death)
  Sender: FDA-Public Use
  Company Number: NL-JNJFOC-20130703434

PATIENT
  Age: 67 Year
  Sex: Female
  Weight: 118 kg

DRUGS (14)
  1. XARELTO [Suspect]
     Indication: PROPHYLAXIS
     Route: 048
     Dates: start: 20130426
  2. RIFADIN [Suspect]
     Indication: INFECTION
     Dosage: 3X150 MG
     Route: 065
     Dates: start: 20130329
  3. ISOSORBIDE MONONITRATE [Concomitant]
     Route: 065
  4. NEBILET [Concomitant]
     Route: 065
  5. PARACETAMOL [Concomitant]
     Route: 065
  6. MOVICOLON [Concomitant]
     Route: 065
  7. OXAZEPAM [Concomitant]
     Route: 065
  8. CALCICHEW-D3 [Concomitant]
     Route: 065
  9. ATROVENT [Concomitant]
     Route: 065
  10. CIPROFLOXACIN [Concomitant]
     Route: 065
  11. CRESTOR [Concomitant]
     Route: 065
  12. AMLODIPINE [Concomitant]
     Route: 065
  13. ALENDRONIC ACID [Concomitant]
     Route: 065
  14. PANTOPRAZOLE [Concomitant]
     Route: 065

REACTIONS (2)
  - Pulmonary embolism [Fatal]
  - Pulmonary embolism [Fatal]
